FAERS Safety Report 5487607-8 (Version None)
Quarter: 2007Q4

REPORT INFORMATION
  Report Type: 
  Country: None (occurrence: None)
  Receive Date: 20071016
  Receipt Date: 20071010
  Transmission Date: 20080405
  Serious: Yes (Hospitalization)
  Sender: FDA-Public Use
  Company Number: US-ELI_LILLY_AND_COMPANY-US200707004703

PATIENT
  Sex: Male

DRUGS (1)
  1. HUMATROPE [Suspect]
     Dates: start: 20000101

REACTIONS (5)
  - ASTHENIA [None]
  - EYELID FUNCTION DISORDER [None]
  - FATIGUE [None]
  - PITUITARY TUMOUR [None]
  - VASCULAR GRAFT [None]
